FAERS Safety Report 18560338 (Version 9)
Quarter: 2022Q1

REPORT INFORMATION
  Report Type: Report from Study
  Country: DE (occurrence: DE)
  Receive Date: 20201130
  Receipt Date: 20220203
  Transmission Date: 20220423
  Serious: Yes (Hospitalization)
  Sender: FDA-Public Use
  Company Number: DE-IPSEN GROUP, RESEARCH AND DEVELOPMENT-2020-23299

PATIENT
  Age: 71 Year
  Sex: Male
  Weight: 75 kg

DRUGS (9)
  1. CABOZANTINIB [Suspect]
     Active Substance: CABOZANTINIB
     Indication: Metastatic renal cell carcinoma
     Dosage: 60 MG, QD
     Route: 065
     Dates: start: 20201027, end: 20201121
  2. BISOPROLOL [Concomitant]
     Active Substance: BISOPROLOL
     Indication: Hypertension
     Dosage: 5 MG DAILY
     Route: 048
     Dates: start: 2019, end: 20201120
  3. PREDNISOLONE [Concomitant]
     Active Substance: PREDNISOLONE
     Indication: Arthritis
     Dosage: 5 MG, DAILY
     Route: 048
     Dates: start: 201910, end: 20201121
  4. PREDNISOLONE [Concomitant]
     Active Substance: PREDNISOLONE
     Dosage: 2.5 MG, DAILY
     Route: 048
     Dates: start: 20201121
  5. METHOTREXATE [Concomitant]
     Active Substance: METHOTREXATE
     Indication: Arthritis
     Dosage: 25 MG, ONE TIME PER WEEK
     Route: 058
     Dates: start: 201910
  6. VITAMIN D [Concomitant]
     Active Substance: VITAMIN D NOS
     Indication: Vitamin D deficiency
     Dosage: 20000 IU EVERY 2 WEEKS
     Route: 048
     Dates: start: 201910
  7. EXFORGE [Concomitant]
     Active Substance: AMLODIPINE BESYLATE\VALSARTAN
     Indication: Hypertension
     Dosage: 10/160 MG, DAILY
     Route: 048
     Dates: start: 20201122, end: 20201202
  8. TINZAPARIN [Concomitant]
     Active Substance: TINZAPARIN
     Indication: Thrombosis prophylaxis
     Dosage: 3500 IU, DAILY
     Route: 058
     Dates: start: 20201121, end: 20201126
  9. FOLIC ACID [Concomitant]
     Active Substance: FOLIC ACID
     Indication: Folate deficiency
     Dosage: 5 MG, EVERY TWO WEEKS
     Route: 048
     Dates: start: 201910

REACTIONS (2)
  - General physical health deterioration [Recovered/Resolved]
  - Ataxia [Recovered/Resolved with Sequelae]

NARRATIVE: CASE EVENT DATE: 20201121
